FAERS Safety Report 6569884-5 (Version None)
Quarter: 2010Q1

REPORT INFORMATION
  Report Type: 
  Country: None (occurrence: None)
  Receive Date: 20100204
  Receipt Date: 20100125
  Transmission Date: 20100710
  Serious: Yes (Hospitalization, Other)
  Sender: FDA-Public Use
  Company Number: PHHY2009DE18374

PATIENT
  Sex: Male
  Weight: 172 kg

DRUGS (2)
  1. EXJADE [Suspect]
     Indication: MYELODYSPLASTIC SYNDROME
     Dosage: 2125 MG DAILY
     Route: 048
     Dates: start: 20081201, end: 20090420
  2. EXJADE [Suspect]
     Indication: HAEMOSIDEROSIS

REACTIONS (16)
  - BLOOD CREATININE INCREASED [None]
  - CENTRAL VENOUS CATHETER REMOVAL [None]
  - CENTRAL VENOUS CATHETERISATION [None]
  - CREATININE RENAL CLEARANCE DECREASED [None]
  - DYSPNOEA [None]
  - FLUID RETENTION [None]
  - GLOMERULAR FILTRATION RATE DECREASED [None]
  - HAEMATURIA [None]
  - LEUKOCYTURIA [None]
  - NAUSEA [None]
  - PROTEINURIA [None]
  - RENAL FAILURE CHRONIC [None]
  - RENAL TUBULAR DISORDER [None]
  - TUBULOINTERSTITIAL NEPHRITIS [None]
  - VOMITING [None]
  - WEIGHT INCREASED [None]
